FAERS Safety Report 24379572 (Version 1)
Quarter: 2024Q3

REPORT INFORMATION
  Report Type: Spontaneous
  Country: CN (occurrence: CN)
  Receive Date: 20240930
  Receipt Date: 20240930
  Transmission Date: 20241017
  Serious: Yes (Life-Threatening, Hospitalization, Other)
  Sender: BAYER
  Company Number: CN-BAYER-2024A139018

PATIENT
  Age: 48 Year
  Sex: Male
  Weight: 86.4 kg

DRUGS (1)
  1. ULTRAVIST [Suspect]
     Active Substance: IOPROMIDE
     Indication: Angiocardiogram
     Dosage: 55 ML, ONCE
     Route: 013
     Dates: start: 20240909, end: 20240909

REACTIONS (4)
  - Sneezing [Recovered/Resolved]
  - Nasal obstruction [Recovered/Resolved]
  - Sensation of foreign body [Recovering/Resolving]
  - Respiratory rate increased [None]

NARRATIVE: CASE EVENT DATE: 20240909
